FAERS Safety Report 24450397 (Version 2)
Quarter: 2024Q4

REPORT INFORMATION
  Report Type: Spontaneous
  Country: US (occurrence: US)
  Receive Date: 20241017
  Receipt Date: 20241125
  Transmission Date: 20250115
  Serious: No
  Sender: FDC LIMITED
  Company Number: US-FDC-2024USSPO00766

PATIENT
  Sex: Female

DRUGS (1)
  1. LATANOPROST [Suspect]
     Active Substance: LATANOPROST
     Indication: Glaucoma
     Route: 065

REACTIONS (1)
  - Eye pain [Unknown]
